FAERS Safety Report 24750541 (Version 2)
Quarter: 2025Q1

REPORT INFORMATION
  Report Type: Report from Study
  Country: US (occurrence: US)
  Receive Date: 20241218
  Receipt Date: 20250306
  Transmission Date: 20250409
  Serious: Yes (Hospitalization, Other)
  Sender: ABBVIE
  Company Number: US-ABBVIE-6049665

PATIENT
  Sex: Female
  Weight: 64.8 kg

DRUGS (2)
  1. LUMIGAN [Suspect]
     Active Substance: BIMATOPROST
     Indication: Product used for unknown indication
     Route: 047
  2. RESTASIS [Suspect]
     Active Substance: CYCLOSPORINE
     Indication: Dry eye
     Dosage: ONE DROP TWO TIMES DAY ON THE LEFT EYE
     Route: 047

REACTIONS (3)
  - Cardiac disorder [Recovering/Resolving]
  - Oedema peripheral [Not Recovered/Not Resolved]
  - Obstruction [Recovering/Resolving]
